FAERS Safety Report 9679497 (Version 1)
Quarter: 2013Q4

REPORT INFORMATION
  Report Type: Spontaneous
  Country: US (occurrence: US)
  Receive Date: 20131109
  Receipt Date: 20131109
  Transmission Date: 20140711
  Serious: No
  Sender: FDA-Public Use
  Company Number: US-SANOFI-AVENTIS-2013SA057744

PATIENT
  Age: 30 Year
  Sex: Male
  Weight: 104 kg

DRUGS (2)
  1. ALLEGRA-D [Suspect]
     Indication: HYPERSENSITIVITY
     Route: 065
  2. ALLEGRA-D [Suspect]
     Indication: NASAL CONGESTION
     Route: 065

REACTIONS (3)
  - Scrotal disorder [Recovered/Resolved]
  - Pain [Recovered/Resolved]
  - Gait disturbance [Recovered/Resolved]
